FAERS Safety Report 16934148 (Version 1)
Quarter: 2019Q4

REPORT INFORMATION
  Report Type: Spontaneous
  Country: FI (occurrence: FI)
  Receive Date: 20191018
  Receipt Date: 20191018
  Transmission Date: 20200122
  Serious: Yes (Disabling)
  Sender: FDA-Public Use
  Company Number: FI-ACCORD-158272

PATIENT
  Age: 38 Year
  Sex: Female

DRUGS (3)
  1. BRINTELLIX [Suspect]
     Active Substance: VORTIOXETINE HYDROBROMIDE
     Indication: ANTIDEPRESSANT THERAPY
     Route: 048
     Dates: start: 20190315, end: 20190819
  2. SERTRALINE [Suspect]
     Active Substance: SERTRALINE HYDROCHLORIDE
     Indication: PRODUCT USED FOR UNKNOWN INDICATION
     Dates: end: 20190411
  3. DOXEPIN [Concomitant]
     Active Substance: DOXEPIN
     Indication: INSOMNIA
     Dosage: 3,MG,DAILY
     Route: 048
     Dates: start: 20190318

REACTIONS (5)
  - Restlessness [Recovering/Resolving]
  - Self-injurious ideation [Recovering/Resolving]
  - Withdrawal syndrome [Recovering/Resolving]
  - Drug ineffective [Unknown]
  - Pruritus [Recovering/Resolving]

NARRATIVE: CASE EVENT DATE: 20190315
